FAERS Safety Report 7095857-2 (Version None)
Quarter: 2010Q4

REPORT INFORMATION
  Report Type: 
  Country: None (occurrence: None)
  Receive Date: 20101111
  Receipt Date: 20090324
  Transmission Date: 20110411
  Serious: No
  Sender: FDA-Public Use
  Company Number: US-KINGPHARMUSA00001-K200900332

PATIENT
  Sex: Female
  Weight: 83.9 kg

DRUGS (9)
  1. SKELAXIN [Suspect]
     Indication: JOINT SWELLING
     Dosage: 800 MG, QD
     Route: 048
     Dates: start: 20090201
  2. SKELAXIN [Suspect]
     Indication: ARTHRALGIA
  3. SKELAXIN [Suspect]
     Indication: INFLAMMATION
  4. ZOLOFT [Suspect]
     Indication: DEPRESSION
     Dosage: 50 MG, QD
     Route: 048
  5. MELOXICAM [Suspect]
     Indication: JOINT SWELLING
     Dosage: 15 MG, QD
     Route: 048
     Dates: start: 20090218, end: 20090306
  6. MELOXICAM [Suspect]
     Indication: INFLAMMATION
  7. MELOXICAM [Suspect]
     Indication: ARTHRALGIA
  8. ACCOLATE [Concomitant]
     Dosage: UNK
  9. VITAMINS                           /90003601/ [Concomitant]

REACTIONS (2)
  - FEELING ABNORMAL [None]
  - SOMNOLENCE [None]
